FAERS Safety Report 7776678-1 (Version None)
Quarter: 2011Q3

REPORT INFORMATION
  Report Type: 
  Country: None (occurrence: None)
  Receive Date: 20110926
  Receipt Date: 20110913
  Transmission Date: 20111222
  Serious: Yes (Other)
  Sender: FDA-Public Use
  Company Number: FI-UCBSA-041253

PATIENT
  Age: 63 Year
  Sex: Female

DRUGS (5)
  1. KEPPRA [Suspect]
     Indication: EPILEPSY
     Dates: start: 20090701, end: 20101001
  2. PRIMASPAN [Concomitant]
  3. POTASSIUM CHLORIDE [Concomitant]
  4. NORVASC [Concomitant]
  5. KEPPRA [Suspect]
     Dosage: DOSE INCREASED
     Dates: start: 20101001, end: 20110101

REACTIONS (2)
  - VISUAL IMPAIRMENT [None]
  - HALLUCINATION [None]
